FAERS Safety Report 6770618-X (Version None)
Quarter: 2010Q2

REPORT INFORMATION
  Report Type: 
  Country: None (occurrence: None)
  Receive Date: 20100615
  Receipt Date: 20100609
  Transmission Date: 20101027
  Serious: Yes (Death, Hospitalization)
  Sender: FDA-Public Use
  Company Number: VE-ABBOTT-10P-178-0646170-00

PATIENT
  Age: 55 Year
  Sex: Female

DRUGS (3)
  1. HUMIRA [Suspect]
     Indication: PSORIASIS
     Route: 058
     Dates: start: 20091008, end: 20100513
  2. ANTIBIOTIC [Concomitant]
     Indication: CANDIDIASIS
     Dates: start: 20100521
  3. REHYDRATION [Concomitant]
     Indication: FLUID REPLACEMENT
     Dates: start: 20100521

REACTIONS (3)
  - ASTHENIA [None]
  - DERMATITIS EXFOLIATIVE [None]
  - ORAL CANDIDIASIS [None]
